FAERS Safety Report 6235926-X (Version None)
Quarter: 2009Q2

REPORT INFORMATION
  Report Type: 
  Country: None (occurrence: None)
  Receive Date: 20090619
  Receipt Date: 20090609
  Transmission Date: 20091009
  Serious: Yes (Other)
  Sender: FDA-Public Use
  Company Number: PHHY2008BR29188

PATIENT
  Age: 63 Year
  Sex: Female
  Weight: 68 kg

DRUGS (5)
  1. EXELON [Suspect]
     Indication: AMNESIA
     Dosage: 1.5 MG, UNK
     Route: 048
     Dates: start: 20081115
  2. CLONAZEPAM [Concomitant]
     Indication: DEPRESSION
     Dosage: 2 MG, UNK
     Route: 048
     Dates: start: 20081115
  3. PAMELOR [Concomitant]
     Indication: DEPRESSION
     Dosage: 10 MG, UNK
     Route: 048
     Dates: start: 20081115
  4. ENALAPRIL MALEATE [Concomitant]
     Indication: DEPRESSION
     Route: 048
  5. SIMVASTATIN [Concomitant]
     Indication: HYPERTENSION
     Dosage: 20 MG, UNK
     Route: 048

REACTIONS (4)
  - ANOREXIA [None]
  - INSOMNIA [None]
  - PRURITUS [None]
  - RASH PAPULAR [None]
